FAERS Safety Report 25649059 (Version 1)
Quarter: 2025Q3

REPORT INFORMATION
  Report Type: Other
  Country: CH (occurrence: CH)
  Receive Date: 20250806
  Receipt Date: 20250806
  Transmission Date: 20251021
  Serious: Yes (Hospitalization, Other)
  Sender: ANI
  Company Number: CH-ANIPHARMA-023920

PATIENT
  Age: 68 Year
  Sex: Female

DRUGS (14)
  1. LEUCOVORIN [Suspect]
     Active Substance: LEUCOVORIN\LEUCOVORIN CALCIUM
     Indication: Cholangiocarcinoma
  2. CISPLATIN [Concomitant]
     Active Substance: CISPLATIN
     Indication: Cholangiocarcinoma
  3. GEMCITABINE [Concomitant]
     Active Substance: GEMCITABINE
     Indication: Cholangiocarcinoma
  4. OXALIPLATIN [Concomitant]
     Active Substance: OXALIPLATIN
     Indication: Cholangiocarcinoma
  5. FLUOROURACIL [Concomitant]
     Active Substance: FLUOROURACIL
     Indication: Cholangiocarcinoma
  6. IRINOTECAN [Concomitant]
     Active Substance: IRINOTECAN
     Indication: Cholangiocarcinoma
  7. ERDAFITINIB [Concomitant]
     Active Substance: ERDAFITINIB
     Indication: Cholangiocarcinoma
  8. RETINOL [Concomitant]
     Active Substance: RETINOL
     Indication: Cholangiocarcinoma
  9. PEMIGATINIB [Concomitant]
     Active Substance: PEMIGATINIB
     Indication: Cholangiocarcinoma
  10. LEUCOVORIN [Suspect]
     Active Substance: LEUCOVORIN\LEUCOVORIN CALCIUM
     Indication: Cholangiocarcinoma
  11. FLUOROURACIL [Concomitant]
     Active Substance: FLUOROURACIL
     Indication: Cholangiocarcinoma
  12. OXALIPLATIN [Concomitant]
     Active Substance: OXALIPLATIN
     Indication: Cholangiocarcinoma
  13. CISPLATIN [Concomitant]
     Active Substance: CISPLATIN
     Indication: Cholangiocarcinoma
  14. GEMCITABINE [Concomitant]
     Active Substance: GEMCITABINE
     Indication: Cholangiocarcinoma

REACTIONS (1)
  - Thrombocytopenia [Unknown]
